FAERS Safety Report 8424172-7 (Version None)
Quarter: 2012Q2

REPORT INFORMATION
  Report Type: 
  Country: None (occurrence: None)
  Receive Date: 20120608
  Receipt Date: 20120309
  Transmission Date: 20120825
  Serious: No
  Sender: FDA-Public Use
  Company Number: US-ASTRAZENECA-2012SE16420

PATIENT
  Age: 10 Year
  Sex: Female
  Weight: 50 kg

DRUGS (4)
  1. PULMICORT [Suspect]
     Route: 055
     Dates: start: 20111201
  2. PULMICORT [Suspect]
     Indication: LOBAR PNEUMONIA
     Dosage: 1.0 ML PER 2 MG, EVERY DAY
     Route: 055
  3. XOPENEX [Concomitant]
     Indication: LOBAR PNEUMONIA
  4. PULMICORT [Suspect]
     Dosage: 1.0 ML PER 2 MG, EVERY DAY
     Route: 055
     Dates: start: 20111101

REACTIONS (6)
  - OFF LABEL USE [None]
  - NASOPHARYNGITIS [None]
  - GROWTH RETARDATION [None]
  - HEART RATE INCREASED [None]
  - MALAISE [None]
  - ABNORMAL BEHAVIOUR [None]
